FAERS Safety Report 12300081 (Version 1)
Quarter: 2016Q2

REPORT INFORMATION
  Report Type: Spontaneous
  Country: US (occurrence: US)
  Receive Date: 20160425
  Receipt Date: 20160425
  Transmission Date: 20160815
  Serious: No
  Sender: FDA-Public Use
  Company Number: US-BAYER-2016-079020

PATIENT
  Age: 82 Year
  Sex: Female
  Weight: 51.7 kg

DRUGS (5)
  1. CENTRUM [MINERALS NOS,VITAMINS NOS] [Concomitant]
  2. MIRALAX [Suspect]
     Active Substance: POLYETHYLENE GLYCOL 3350
     Indication: INTESTINAL RESECTION
     Dosage: 1 DF, QD
     Route: 048
     Dates: start: 2009
  3. COLACE [Concomitant]
     Active Substance: DOCUSATE SODIUM
  4. SENNA [Concomitant]
     Active Substance: SENNA LEAF\SENNOSIDES\SENNOSIDES A AND B
  5. ATENOLOL. [Concomitant]
     Active Substance: ATENOLOL

REACTIONS (2)
  - Product use issue [Recovered/Resolved]
  - Product use issue [None]

NARRATIVE: CASE EVENT DATE: 2009
